FAERS Safety Report 25416522 (Version 1)
Quarter: 2025Q2

REPORT INFORMATION
  Report Type: Spontaneous
  Country: CH (occurrence: CH)
  Receive Date: 20250610
  Receipt Date: 20250610
  Transmission Date: 20250716
  Serious: Yes (Other)
  Sender: ASCENT PHARMACEUTICALS INC
  Company Number: CH-ASCENT-2025ASLIT00096

PATIENT
  Age: 51 Year
  Sex: Female
  Weight: 43 kg

DRUGS (2)
  1. VENLAFAXINE [Suspect]
     Active Substance: VENLAFAXINE HYDROCHLORIDE
     Indication: Decreased appetite
     Dosage: FOR 15 YEARS
     Route: 065
  2. VENLAFAXINE [Suspect]
     Active Substance: VENLAFAXINE HYDROCHLORIDE
     Indication: Decreased appetite
     Route: 065

REACTIONS (4)
  - Cardiotoxicity [Recovered/Resolved]
  - Hypertension [Recovered/Resolved]
  - Left ventricular hypertrophy [Recovered/Resolved]
  - Product use in unapproved indication [Unknown]
